FAERS Safety Report 7010451-7 (Version None)
Quarter: 2010Q3

REPORT INFORMATION
  Report Type: 
  Country: None (occurrence: None)
  Receive Date: 20100923
  Receipt Date: 20100920
  Transmission Date: 20110219
  Serious: Yes (Death, Hospitalization)
  Sender: FDA-Public Use
  Company Number: BR-ABBOTT-10P-020-0671847-00

PATIENT
  Sex: Male
  Weight: 47 kg

DRUGS (1)
  1. HUMIRA [Suspect]
     Indication: ANKYLOSING SPONDYLITIS
     Route: 058

REACTIONS (6)
  - ABASIA [None]
  - ABDOMINAL DISTENSION [None]
  - ASCITES [None]
  - HYPOPHAGIA [None]
  - RESPIRATORY FAILURE [None]
  - WEIGHT DECREASED [None]
